FAERS Safety Report 9499437 (Version 3)
Quarter: 2014Q1

REPORT INFORMATION
  Report Type: Spontaneous
  Country: CA (occurrence: None)
  Receive Date: 20130903
  Receipt Date: 20140204
  Transmission Date: 20141002
  Serious: Yes (Other)
  Sender: FDA-Public Use
  Company Number: 2013CA002367

PATIENT
  Age: 65 Year
  Sex: Female
  Weight: 79 kg

DRUGS (8)
  1. PONATINIB [Suspect]
     Indication: CHRONIC MYELOID LEUKAEMIA
     Route: 048
     Dates: start: 20130116, end: 20130122
  2. METOPROLOL (METOPROLOL) [Concomitant]
  3. RAMIPRIL (RAMIPRIL) [Concomitant]
  4. HYDROCHLOROTHIAZIDE (HYDROCHLOROTHIAZIDE) [Concomitant]
  5. ASA (ASA) [Concomitant]
  6. CRESTOR (ROSUVASTATIN CALCIUM) [Concomitant]
  7. NORVASC (AMLODIPINE BESILATE) [Concomitant]
  8. METFORMIN (METFORMIN) [Concomitant]

REACTIONS (3)
  - Cerebellar infarction [None]
  - Carotid arteriosclerosis [None]
  - Lacunar infarction [None]
